FAERS Safety Report 8427579-7 (Version None)
Quarter: 2012Q2

REPORT INFORMATION
  Report Type: 
  Country: None (occurrence: None)
  Receive Date: 20120611
  Receipt Date: 20120604
  Transmission Date: 20120825
  Serious: Yes (Hospitalization, Other)
  Sender: FDA-Public Use
  Company Number: DE-B.I. PHARMACEUTICALS,INC./RIDGEFIELD-2012-DE-01413DE

PATIENT
  Age: 87 Year
  Sex: Female
  Weight: 71 kg

DRUGS (10)
  1. SPIRONOLACTONE [Concomitant]
  2. PRADAXA [Suspect]
     Dosage: 300 MG
     Dates: start: 20120501
  3. RAMIPRIL [Concomitant]
  4. ASCORBIC ACID [Concomitant]
  5. DEKRISTOL [Concomitant]
  6. METOPROLOL TARTRATE [Concomitant]
  7. SYMBICORT [Concomitant]
  8. LEVOTHYROXINE SODIUM [Concomitant]
  9. DIGITOXIN TAB [Concomitant]
  10. TORSEMIDE [Concomitant]

REACTIONS (4)
  - OEDEMA PERIPHERAL [None]
  - DIZZINESS [None]
  - CIRCULATORY COLLAPSE [None]
  - DRUG ADMINISTRATION ERROR [None]
